FAERS Safety Report 9770688 (Version 2)
Quarter: 2013Q4

REPORT INFORMATION
  Report Type: Spontaneous
  Country: NL (occurrence: NL)
  Receive Date: 20131218
  Receipt Date: 20131230
  Transmission Date: 20140711
  Serious: Yes (Hospitalization)
  Sender: FDA-Public Use
  Company Number: NL-GLAXOSMITHKLINE-B0953386A

PATIENT
  Age: 41 Year
  Sex: Female
  Weight: 96 kg

DRUGS (15)
  1. FLIXONASE [Suspect]
     Indication: NASAL CONGESTION
     Dosage: 150UNIT TWICE PER DAY
     Route: 045
     Dates: start: 2011, end: 20131118
  2. BACTROBAN [Suspect]
     Indication: INFECTION
     Route: 065
     Dates: start: 20131126, end: 20131206
  3. THYRAX [Concomitant]
     Dosage: .025MG PER DAY
     Route: 048
     Dates: start: 2000
  4. THYRAX [Concomitant]
     Dosage: .2MG PER DAY
     Route: 048
     Dates: start: 2000
  5. PREDNISON [Concomitant]
     Dosage: 2.5MG PER DAY
     Route: 048
     Dates: start: 2007
  6. AZATHIOPRINE [Concomitant]
     Dosage: 50MG THREE TIMES PER DAY
     Route: 048
     Dates: start: 2007
  7. MESTINON [Concomitant]
     Dosage: 60MG FOUR TIMES PER DAY
     Route: 048
     Dates: start: 2006
  8. OXCARBAZEPINE [Concomitant]
     Dosage: 900MG TWICE PER DAY
     Route: 048
     Dates: start: 2002
  9. PANTOZOL [Concomitant]
     Dosage: 40MG PER DAY
     Route: 048
     Dates: start: 2006
  10. BETAMETHASONE/KETOCONAZOLE/NEOMYCIN [Concomitant]
     Dosage: 1UNIT PER DAY
     Route: 058
     Dates: start: 2013
  11. KETOCONAZOL [Concomitant]
     Dosage: 1UNIT TWICE PER DAY
     Route: 058
     Dates: start: 2013
  12. CO-TRIMOXAZOL [Concomitant]
     Dates: start: 20131204, end: 20131213
  13. SERETIDE [Concomitant]
     Dates: start: 2005
  14. VENTOLIN [Concomitant]
     Dosage: 800MCG PER DAY
     Dates: start: 2005
  15. NASONEX [Concomitant]
     Dates: start: 20131126

REACTIONS (4)
  - Nasal septum perforation [Not Recovered/Not Resolved]
  - Dyspnoea [Recovered/Resolved]
  - Multiple sclerosis relapse [Unknown]
  - Myasthenia gravis [Recovering/Resolving]
